FAERS Safety Report 25975732 (Version 1)
Quarter: 2025Q4

REPORT INFORMATION
  Report Type: Spontaneous
  Country: EU (occurrence: EU)
  Receive Date: 20251029
  Receipt Date: 20251029
  Transmission Date: 20260117
  Serious: Yes (Hospitalization, Other)
  Sender: SANDOZ
  Company Number: EU-REGENERON PHARMACEUTICALS, INC.-2025-161551

PATIENT
  Age: 66 Year
  Sex: Male

DRUGS (3)
  1. CARBOPLATIN [Suspect]
     Active Substance: CARBOPLATIN
     Indication: Product used for unknown indication
     Dosage: CARBOPLATIN AUC5 + PEMETREXED +  CEMIPLIMAB (EMPOWER LUNG 3): 4  INITIAL CYCLES AND 3 MAINTENANCE CY
     Route: 065
  2. CEMIPLIMAB [Suspect]
     Active Substance: CEMIPLIMAB
     Indication: Product used for unknown indication
     Dosage: 4 INITIAL CYCLES AND 3 MAINTENANCE CYCLES
     Route: 065
  3. PEMETREXED [Suspect]
     Active Substance: PEMETREXED
     Indication: Product used for unknown indication
     Dosage: 4 INITIAL CYCLES AND 3 MAINTENANCE CYCLES
     Route: 065

REACTIONS (2)
  - Constipation [Unknown]
  - Immune-mediated enterocolitis [Unknown]

NARRATIVE: CASE EVENT DATE: 20250801
